FAERS Safety Report 15061188 (Version 1)
Quarter: 2018Q2

REPORT INFORMATION
  Report Type: Spontaneous
  Country: US (occurrence: US)
  Receive Date: 20180625
  Receipt Date: 20180625
  Transmission Date: 20180711
  Serious: Yes (Hospitalization)
  Sender: FDA-Public Use
  Company Number: US-ROCHE-1941996

PATIENT
  Age: 38 Year
  Sex: Female

DRUGS (5)
  1. EPIRUBICIN [Suspect]
     Active Substance: EPIRUBICIN
     Indication: ADENOCARCINOMA GASTRIC
     Route: 065
  2. 5-FU [Concomitant]
     Active Substance: FLUOROURACIL
     Indication: ADENOCARCINOMA GASTRIC
  3. XELODA [Suspect]
     Active Substance: CAPECITABINE
     Indication: ADENOCARCINOMA GASTRIC
     Route: 065
  4. XELODA [Suspect]
     Active Substance: CAPECITABINE
     Route: 065
  5. CISPLATIN. [Suspect]
     Active Substance: CISPLATIN
     Indication: ADENOCARCINOMA GASTRIC
     Route: 065

REACTIONS (3)
  - Asthenia [Unknown]
  - Nausea [Unknown]
  - Vomiting [Unknown]
